FAERS Safety Report 8539925 (Version 7)
Quarter: 2013Q2

REPORT INFORMATION
  Report Type: Spontaneous
  Country: US (occurrence: US)
  Receive Date: 20120502
  Receipt Date: 20130604
  Transmission Date: 20140414
  Serious: No
  Sender: FDA-Public Use
  Company Number: US-PFIZER INC-2012105069

PATIENT
  Age: 64 Year
  Sex: Female
  Weight: 66.67 kg

DRUGS (14)
  1. LYRICA [Suspect]
     Indication: FIBROMYALGIA
     Dosage: 200 MG DAILY (50 MG IN MORNING, 50 MG IN AFTERNOON AND 100 MG AT NIGHT)
     Route: 048
     Dates: start: 2007
  2. LYRICA [Suspect]
     Dosage: 150 MG, 3X/DAY
  3. LUNESTA [Concomitant]
     Indication: SLEEP DISORDER
     Dosage: 3 MG, AS NEEDED AT NIGHT
     Route: 048
  4. NORCO [Concomitant]
     Indication: BREAKTHROUGH PAIN
     Dosage: 1 DF, 3X/DAY
     Route: 048
  5. ROBAXIN [Concomitant]
     Dosage: TAKE 1-2 TABLET BY MOUTH UP TO 3X/DAY
     Route: 048
  6. ATROVENT HFA [Concomitant]
     Indication: LUNG DISORDER
     Dosage: 17 MCG/ACT AERS 2 PUFFS, QID
  7. DOCUSATE SODIUM [Concomitant]
     Dosage: 240 MG, 2X/DAY
     Route: 048
  8. REGLAN [Concomitant]
     Dosage: 5 MG, 3X/DAY
     Route: 048
  9. PRILOSEC [Concomitant]
     Dosage: 20 MG, 2X/DAY
     Route: 048
  10. POLYETHYLENE GLYCOL [Concomitant]
     Dosage: UNK
  11. MORPHINE [Concomitant]
     Dosage: UNK
  12. HYDROCHLOROTHIAZIDE [Concomitant]
     Dosage: UNK
  13. ERYTHROMYCIN [Concomitant]
     Dosage: UNK
  14. MIRTAZAPINE [Concomitant]
     Dosage: UNK

REACTIONS (3)
  - Confusional state [Recovering/Resolving]
  - Nasopharyngitis [Recovering/Resolving]
  - Cough [Recovering/Resolving]
